FAERS Safety Report 5060256-1 (Version None)
Quarter: 2006Q3

REPORT INFORMATION
  Report Type: 
  Country: None (occurrence: None)
  Receive Date: 20060724
  Receipt Date: 20060703
  Transmission Date: 20061208
  Serious: Yes (Hospitalization)
  Sender: FDA-Public Use
  Company Number: CG-MERCK-0607USA00699

PATIENT
  Sex: Male

DRUGS (1)
  1. STROMECTOL [Suspect]
     Route: 048
     Dates: start: 20060526, end: 20060526

REACTIONS (5)
  - ANOREXIA [None]
  - ASTHENIA [None]
  - BACK PAIN [None]
  - HEADACHE [None]
  - OCULAR HYPERAEMIA [None]
